FAERS Safety Report 17878542 (Version 3)
Quarter: 2020Q4

REPORT INFORMATION
  Report Type: Other
  Country: US (occurrence: US)
  Receive Date: 20200610
  Receipt Date: 20201127
  Transmission Date: 20210113
  Serious: Yes (Death)
  Sender: FDA-Public Use
  Company Number: US-ROCHE-2605870

PATIENT
  Age: 39 Year
  Sex: Male

DRUGS (2)
  1. ACTEMRA [Suspect]
     Active Substance: TOCILIZUMAB
     Indication: COVID-19
     Route: 042
     Dates: start: 20200408, end: 20200426
  2. ACTEMRA [Suspect]
     Active Substance: TOCILIZUMAB
     Indication: PNEUMONIA VIRAL

REACTIONS (3)
  - Death [Fatal]
  - Off label use [Fatal]
  - Intentional product use issue [Fatal]

NARRATIVE: CASE EVENT DATE: 20200426
